FAERS Safety Report 11291121 (Version 4)
Quarter: 2015Q4

REPORT INFORMATION
  Report Type: Report from Study
  Country: CA (occurrence: CA)
  Receive Date: 20150722
  Receipt Date: 20151110
  Transmission Date: 20160304
  Serious: Yes (Hospitalization, Other)
  Sender: FDA-Public Use
  Company Number: CA-ROCHE-1601495

PATIENT
  Age: 77 Year
  Sex: Male

DRUGS (10)
  1. PANTOPRAZOLE [Concomitant]
     Active Substance: PANTOPRAZOLE SODIUM
  2. ATORVASTATIN [Concomitant]
     Active Substance: ATORVASTATIN
  3. FUROSEMIDE. [Concomitant]
     Active Substance: FUROSEMIDE
  4. VITAMIN B12 [Concomitant]
     Active Substance: CYANOCOBALAMIN
  5. CLOPIDOGREL [Concomitant]
     Active Substance: CLOPIDOGREL BISULFATE
  6. ESBRIET [Suspect]
     Active Substance: PIRFENIDONE
     Indication: IDIOPATHIC PULMONARY FIBROSIS
     Route: 048
     Dates: start: 20150629, end: 20150712
  7. PREDNISONE. [Concomitant]
     Active Substance: PREDNISONE
  8. MESALAMINE. [Concomitant]
     Active Substance: MESALAMINE
  9. DONEPEZIL. [Concomitant]
     Active Substance: DONEPEZIL
  10. CLONAZEPAM. [Concomitant]
     Active Substance: CLONAZEPAM

REACTIONS (7)
  - Colitis ulcerative [Unknown]
  - Thrombosis [Unknown]
  - Diverticulitis [Unknown]
  - Clostridium difficile infection [Unknown]
  - Accidental overdose [Unknown]
  - Abdominal pain upper [Not Recovered/Not Resolved]
  - Hypercoagulation [Unknown]

NARRATIVE: CASE EVENT DATE: 20150629
